FAERS Safety Report 9274282 (Version 1)
Quarter: 2013Q2

REPORT INFORMATION
  Report Type: Spontaneous
  Country: US (occurrence: US)
  Receive Date: 20130506
  Receipt Date: 20130506
  Transmission Date: 20140414
  Serious: No
  Sender: FDA-Public Use
  Company Number: US-AMGEN-USASP2013026114

PATIENT
  Age: 61 Year
  Sex: Male

DRUGS (1)
  1. ENBREL [Suspect]
     Indication: PRODUCT USED FOR UNKNOWN INDICATION
     Dosage: 50 MG, QWK
     Dates: start: 2010

REACTIONS (4)
  - Pain [Not Recovered/Not Resolved]
  - Immune system disorder [Not Recovered/Not Resolved]
  - Contusion [Not Recovered/Not Resolved]
  - Herpes virus infection [Not Recovered/Not Resolved]
